FAERS Safety Report 12209928 (Version 3)
Quarter: 2016Q2

REPORT INFORMATION
  Report Type: Report from Study
  Country: US (occurrence: US)
  Receive Date: 20160325
  Receipt Date: 20160517
  Transmission Date: 20160815
  Serious: Yes (Other)
  Sender: FDA-Public Use
  Company Number: US-AMGEN-USASL2016035382

PATIENT
  Age: 65 Year
  Sex: Male

DRUGS (1)
  1. ENBREL [Suspect]
     Active Substance: ETANERCEPT
     Indication: RHEUMATOID ARTHRITIS
     Dosage: 50 MG, QWK
     Route: 065
     Dates: start: 20160204

REACTIONS (8)
  - Pruritus [Unknown]
  - Drug effect incomplete [Unknown]
  - Ventricular extrasystoles [Unknown]
  - Chest pain [Unknown]
  - Renal failure [Unknown]
  - Exostosis [Unknown]
  - Haemoglobin increased [Unknown]
  - Haematocrit increased [Unknown]

NARRATIVE: CASE EVENT DATE: 2016
